FAERS Safety Report 7311573-3 (Version None)
Quarter: 2011Q1

REPORT INFORMATION
  Report Type: 
  Country: None (occurrence: None)
  Receive Date: 20110224
  Receipt Date: 20110217
  Transmission Date: 20110831
  Serious: Yes (Other)
  Sender: FDA-Public Use
  Company Number: US-B.I. PHARMACEUTICALS,INC./RIDGEFIELD-2011-BP-04459PF

PATIENT
  Age: 73 Year
  Sex: Female

DRUGS (6)
  1. ALBUTEROL [Suspect]
  2. ADVAIR DISKUS 100/50 [Suspect]
  3. OXYGEN [Concomitant]
  4. MAXAIR [Suspect]
  5. SPIRIVA [Suspect]
  6. DRUG USED IN DIABETES [Suspect]
     Indication: DIABETES MELLITUS
     Route: 048

REACTIONS (4)
  - INTRACRANIAL ANEURYSM [None]
  - MEMORY IMPAIRMENT [None]
  - CHRONIC OBSTRUCTIVE PULMONARY DISEASE [None]
  - DIZZINESS [None]
